FAERS Safety Report 22632441 (Version 1)
Quarter: 2023Q2

REPORT INFORMATION
  Report Type: Spontaneous
  Country: GB (occurrence: GB)
  Receive Date: 20230623
  Receipt Date: 20230623
  Transmission Date: 20230721
  Serious: Yes (Other)
  Sender: FDA-Public Use
  Company Number: GB-002147023-NVSC2023GB137812

PATIENT
  Age: 78 Year
  Sex: Female

DRUGS (1)
  1. DEXAMETHASONE [Suspect]
     Active Substance: DEXAMETHASONE
     Indication: Keratoplasty
     Dosage: UNK, QD (LEFT AND RIGHT EYE)
     Route: 061

REACTIONS (2)
  - Ocular hypertension [Unknown]
  - Product use in unapproved indication [Unknown]
